FAERS Safety Report 25521695 (Version 3)
Quarter: 2025Q4

REPORT INFORMATION
  Report Type: Report from Study
  Country: US (occurrence: None)
  Receive Date: 20250706
  Receipt Date: 20251124
  Transmission Date: 20260117
  Serious: Yes (Hospitalization, Other)
  Sender: UCB
  Company Number: US-UCBSA-2025039975

PATIENT
  Weight: 62.6 kg

DRUGS (2)
  1. ROTIGOTINE [Suspect]
     Active Substance: ROTIGOTINE
     Indication: Parkinson^s disease
     Dosage: 4 MILLIGRAM, ONCE DAILY (QD)
  2. MIRAPEX [Suspect]
     Active Substance: PRAMIPEXOLE DIHYDROCHLORIDE
     Indication: Product used for unknown indication
     Dosage: UNK

REACTIONS (12)
  - Aortic dilatation [Recovering/Resolving]
  - Dyspnoea [Recovering/Resolving]
  - Renal disorder [Recovering/Resolving]
  - Cardiac disorder [Recovering/Resolving]
  - Dehydration [Unknown]
  - Malnutrition [Unknown]
  - Urinary tract infection [Unknown]
  - Weight decreased [Unknown]
  - Speech disorder [Recovering/Resolving]
  - Nervous system disorder [Recovering/Resolving]
  - Vomiting [Unknown]
  - Nausea [Unknown]
